FAERS Safety Report 10062476 (Version 1)
Quarter: 2014Q2

REPORT INFORMATION
  Report Type: Spontaneous
  Country: RU (occurrence: RU)
  Receive Date: 20140407
  Receipt Date: 20140407
  Transmission Date: 20141212
  Serious: Yes (Life-Threatening, Other)
  Sender: FDA-Public Use
  Company Number: RU-ASTRAZENECA-2014SE23747

PATIENT
  Age: 61 Year
  Sex: Male

DRUGS (3)
  1. BRILINTA [Suspect]
     Indication: ACUTE CORONARY SYNDROME
     Route: 048
     Dates: start: 20140324, end: 20140328
  2. BRILINTA [Suspect]
     Indication: THROMBOSIS IN DEVICE
     Route: 048
     Dates: start: 20140324, end: 20140328
  3. ACETYLSALICYLIC ACID [Concomitant]

REACTIONS (2)
  - Haemoglobin decreased [Recovered/Resolved]
  - Gastrointestinal haemorrhage [Recovered/Resolved]
